FAERS Safety Report 4324177-1 (Version None)
Quarter: 2004Q1

REPORT INFORMATION
  Report Type: 
  Country: None (occurrence: None)
  Receive Date: 20040326
  Receipt Date: 20040105
  Transmission Date: 20041129
  Serious: No
  Sender: FDA-Public Use
  Company Number: US-GLAXOSMITHKLINE-A0491356A

PATIENT
  Age: 77 Year
  Sex: Female

DRUGS (9)
  1. ADVAIR DISKUS 100/50 [Suspect]
     Dosage: 1PUFF PER DAY
     Route: 055
     Dates: start: 20030701
  2. DIGOXIN [Concomitant]
  3. METOPROLOL [Concomitant]
  4. ISOSORBIDE [Concomitant]
  5. THEOPHYLLINE [Concomitant]
  6. EVISTA [Concomitant]
  7. ALBUTEROL [Concomitant]
     Route: 065
  8. OXYGEN [Concomitant]
  9. IPRATROPIUM BROMIDE [Concomitant]
     Route: 065

REACTIONS (1)
  - INSOMNIA [None]
